FAERS Safety Report 17066571 (Version 1)
Quarter: 2019Q4

REPORT INFORMATION
  Report Type: Spontaneous
  Country: AU (occurrence: AU)
  Receive Date: 20191122
  Receipt Date: 20191122
  Transmission Date: 20200122
  Serious: Yes (Other)
  Sender: FDA-Public Use
  Company Number: AU-ASCEND THERAPEUTICS US, LLC-2077133

PATIENT
  Age: 28 Year
  Sex: Female

DRUGS (1)
  1. ESTROGEL [Suspect]
     Active Substance: ESTRADIOL
     Indication: PRODUCT USED FOR UNKNOWN INDICATION

REACTIONS (10)
  - Acute kidney injury [Unknown]
  - Atypical haemolytic uraemic syndrome [Unknown]
  - Pulmonary oedema [Unknown]
  - Abortion spontaneous [Unknown]
  - Hepatic function abnormal [Unknown]
  - Abortion incomplete [Unknown]
  - Pancreatitis [Unknown]
  - Maternal exposure during pregnancy [None]
  - Thrombocytopenia [Unknown]
  - Haemolytic anaemia [Unknown]
